FAERS Safety Report 7365620-3 (Version None)
Quarter: 2011Q1

REPORT INFORMATION
  Report Type: 
  Country: None (occurrence: None)
  Receive Date: 20110316
  Receipt Date: 20110316
  Transmission Date: 20110831
  Serious: Yes (Hospitalization)
  Sender: FDA-Public Use
  Company Number: None

PATIENT
  Age: 72 Year
  Sex: Female
  Weight: 66.2252 kg

DRUGS (2)
  1. LISINOPRIL AND HYDROCHLOROTHIAZIDE [Suspect]
     Indication: BLOOD PRESSURE
     Dosage: 10-12.5MG TAB 1 A DAY ORALLY
     Route: 048
  2. LISINOPRIL AND HYDROCHLOROTHIAZIDE [Suspect]
     Indication: BLOOD PRESSURE
     Dosage: WATSON LISINOPRIL 10-12.5  1 A DAY ORALLY  3 TO 4 YRS
     Route: 048

REACTIONS (15)
  - MUSCULOSKELETAL PAIN [None]
  - PARAESTHESIA ORAL [None]
  - DIZZINESS [None]
  - VISION BLURRED [None]
  - HYPOAESTHESIA FACIAL [None]
  - BURNING SENSATION [None]
  - BREAST SWELLING [None]
  - EAR DISCOMFORT [None]
  - GINGIVAL BLEEDING [None]
  - HYPERHIDROSIS [None]
  - FACIAL PAIN [None]
  - PAIN IN EXTREMITY [None]
  - PRURITUS [None]
  - NAUSEA [None]
  - COUGH [None]
